FAERS Safety Report 8286490-5 (Version None)
Quarter: 2012Q2

REPORT INFORMATION
  Report Type: 
  Country: None (occurrence: None)
  Receive Date: 20120416
  Receipt Date: 20120412
  Transmission Date: 20120825
  Serious: Yes (Death, Hospitalization)
  Sender: FDA-Public Use
  Company Number: IT-PFIZER INC-2012080440

PATIENT
  Age: 58 Year
  Sex: Female

DRUGS (2)
  1. SUTENT [Suspect]
     Dosage: UNK
     Dates: end: 20120214
  2. SUTENT [Suspect]
     Indication: RENAL CELL CARCINOMA
     Dosage: 37.5 MG, 1X/DAY
     Route: 048
     Dates: start: 20110328, end: 20110615

REACTIONS (6)
  - RENAL CELL CARCINOMA [None]
  - ADRENAL INSUFFICIENCY [None]
  - ASTHENIA [None]
  - ERYTHEMA [None]
  - DISEASE PROGRESSION [None]
  - STOMATITIS [None]
